FAERS Safety Report 17966678 (Version 2)
Quarter: 2020Q3

REPORT INFORMATION
  Report Type: Report from Study
  Country: IN (occurrence: IN)
  Receive Date: 20200630
  Receipt Date: 20200716
  Transmission Date: 20201103
  Serious: Yes (Hospitalization)
  Sender: FDA-Public Use
  Company Number: IN-BAXTER-2020BAX013351

PATIENT
  Age: 82 Year
  Sex: Male

DRUGS (3)
  1. PERITONEAL DIALYSIS SOLUTION WITH 2.5% DEXTROSE [Suspect]
     Active Substance: CALCIUM CHLORIDE\DEXTROSE\MAGNESIUM CHLORIDE\SODIUM CHLORIDE\SODIUM LACTATE
     Indication: RENAL FAILURE
     Route: 033
  2. ATORVASTATIN [Concomitant]
     Active Substance: ATORVASTATIN
     Indication: MYOCARDIAL INFARCTION
     Route: 065
  3. CLOPIDOGREL [Concomitant]
     Active Substance: CLOPIDOGREL BISULFATE
     Indication: MYOCARDIAL INFARCTION
     Route: 065

REACTIONS (2)
  - Myocardial infarction [Recovered/Resolved]
  - Peritonitis [Recovered/Resolved]

NARRATIVE: CASE EVENT DATE: 20200617
